FAERS Safety Report 21436774 (Version 1)
Quarter: 2022Q4

REPORT INFORMATION
  Report Type: Spontaneous
  Country: FR (occurrence: FR)
  Receive Date: 20221010
  Receipt Date: 20221010
  Transmission Date: 20230113
  Serious: Yes (Hospitalization, Other)
  Sender: FDA-Public Use
  Company Number: FR-IGSA-BIG0020606

PATIENT
  Age: 72 Year
  Sex: Female
  Weight: 47 kg

DRUGS (3)
  1. PROLASTIN [Suspect]
     Active Substance: .ALPHA.1-PROTEINASE INHIBITOR HUMAN
     Indication: Alpha-1 antitrypsin deficiency
     Dosage: 1 GRAM, Q.WK.
     Route: 042
     Dates: start: 2021, end: 202208
  2. ALBUTEROL SULFATE [Concomitant]
     Active Substance: ALBUTEROL SULFATE
     Indication: Emphysema
  3. SYMBICORT [Concomitant]
     Active Substance: BUDESONIDE\FORMOTEROL FUMARATE DIHYDRATE
     Indication: Emphysema

REACTIONS (6)
  - Vena cava thrombosis [Unknown]
  - Eyelid oedema [Unknown]
  - Aneurysm [Unknown]
  - Abdominal pain [Unknown]
  - Vascular pseudoaneurysm [Unknown]
  - Mesenteric haematoma [Unknown]

NARRATIVE: CASE EVENT DATE: 20220829
